FAERS Safety Report 9145588 (Version 1)
Quarter: 2013Q1

REPORT INFORMATION
  Report Type: Spontaneous
  Country: US (occurrence: None)
  Receive Date: 20130227
  Receipt Date: 20130227
  Transmission Date: 20140127
  Serious: Yes (Hospitalization)
  Sender: FDA-Public Use
  Company Number: None

PATIENT
  Sex: Female
  Weight: 44.3 kg

DRUGS (4)
  1. MERCAPTOPURINE [Suspect]
  2. METHOTREXATE [Suspect]
  3. VINCRISTINE SULFATE [Suspect]
  4. DEXAMETHASONE [Suspect]

REACTIONS (11)
  - Abdominal pain [None]
  - Jaundice [None]
  - Transaminases increased [None]
  - Fatigue [None]
  - Decreased appetite [None]
  - Cough [None]
  - Venoocclusive disease [None]
  - Budd-Chiari syndrome [None]
  - Infection [None]
  - Leukaemia [None]
  - Hepatotoxicity [None]
